FAERS Safety Report 18062675 (Version 1)
Quarter: 2020Q3

REPORT INFORMATION
  Report Type: Spontaneous
  Country: US (occurrence: US)
  Receive Date: 20200724
  Receipt Date: 20200724
  Transmission Date: 20201103
  Serious: No
  Sender: FDA-Public Use
  Company Number: US-ALLERGAN-2012315US

PATIENT
  Sex: Female
  Weight: 70.3 kg

DRUGS (7)
  1. GALANTAMINE. [Concomitant]
     Active Substance: GALANTAMINE
  2. FLUDROCORTISONE [Concomitant]
     Active Substance: FLUDROCORTISONE
  3. NAMENDA XR [Suspect]
     Active Substance: MEMANTINE HYDROCHLORIDE
     Indication: DEMENTIA ALZHEIMER^S TYPE
     Dosage: 28 MG, QD
     Route: 048
     Dates: start: 2018
  4. GOCOVRI [Interacting]
     Active Substance: AMANTADINE
     Indication: MUSCLE RIGIDITY
     Dosage: 137 MG, QHS
     Route: 048
     Dates: start: 20190809, end: 201909
  5. ATORVASTATIN [Concomitant]
     Active Substance: ATORVASTATIN
  6. GOCOVRI [Interacting]
     Active Substance: AMANTADINE
     Indication: DYSKINESIA
     Dosage: 274 MG, QHS
     Route: 048
     Dates: start: 201909
  7. ELIQUIS [Concomitant]
     Active Substance: APIXABAN

REACTIONS (4)
  - Drug interaction [Unknown]
  - Vomiting [Recovered/Resolved]
  - Nausea [Recovered/Resolved]
  - Tremor [Recovered/Resolved]
